FAERS Safety Report 14491140 (Version 5)
Quarter: 2018Q2

REPORT INFORMATION
  Report Type: Spontaneous
  Country: PL (occurrence: PL)
  Receive Date: 20180206
  Receipt Date: 20180519
  Transmission Date: 20180711
  Serious: Yes (Hospitalization, Other)
  Sender: FDA-Public Use
  Company Number: PL-AUROBINDO-AUR-APL-2018-004579

PATIENT
  Age: 75 Year
  Sex: Male

DRUGS (21)
  1. FUROSEMIDE. [Concomitant]
     Active Substance: FUROSEMIDE
     Dosage: 40 MG DAILY
     Route: 065
  2. AMLODIPINE [Suspect]
     Active Substance: AMLODIPINE BESYLATE
     Indication: TACHYCARDIA PAROXYSMAL
     Dosage: 5 MILLIGRAM, DAILY
     Route: 065
  3. CARVEDILOL. [Suspect]
     Active Substance: CARVEDILOL
     Dosage: 6.25 MG PER 24 H
     Route: 065
     Dates: end: 200504
  4. CILAZAPRIL [Suspect]
     Active Substance: CILAZAPRIL ANHYDROUS
     Dosage: 1 MG DAILY
     Route: 065
  5. ALLOPURINOL. [Suspect]
     Active Substance: ALLOPURINOL
     Dosage: 200 MG DAILY
     Route: 065
  6. NEO RECORMON [Concomitant]
     Active Substance: ERYTHROPOIETIN
     Indication: TACHYCARDIA PAROXYSMAL
     Dosage: 1000 U, QW
     Route: 065
  7. ACETYLSALICYLIC ACID [Concomitant]
     Active Substance: ASPIRIN
     Indication: PRODUCT USED FOR UNKNOWN INDICATION
     Dosage: 75 MG, ONCE A DAY
     Route: 065
  8. ATORVASTATIN [Concomitant]
     Active Substance: ATORVASTATIN
     Indication: PRODUCT USED FOR UNKNOWN INDICATION
     Dosage: 20 MG, ONCE A DAY
     Route: 065
  9. CARVEDILOL. [Suspect]
     Active Substance: CARVEDILOL
     Dosage: ()
     Route: 065
  10. OPACORDEN [Suspect]
     Active Substance: AMIODARONE HYDROCHLORIDE
     Indication: SUPRAVENTRICULAR TACHYCARDIA
     Dosage: 200 MG, ONCE A DAY
     Route: 065
  11. OPACORDEN [Suspect]
     Active Substance: AMIODARONE HYDROCHLORIDE
     Dosage: 200 MG PER 24 H
     Route: 065
     Dates: end: 200506
  12. CARVEDILOL. [Suspect]
     Active Substance: CARVEDILOL
     Indication: SUPRAVENTRICULAR TACHYCARDIA
     Dosage: 6.25 MILLIGRAM, ONCE A DAY
     Route: 065
     Dates: start: 200504
  13. CILAZAPRIL [Suspect]
     Active Substance: CILAZAPRIL ANHYDROUS
     Dosage: ()
     Route: 065
  14. CILAZAPRIL [Suspect]
     Active Substance: CILAZAPRIL ANHYDROUS
     Indication: TACHYCARDIA PAROXYSMAL
     Dosage: 1 MG, ONCE A DAY
     Route: 065
  15. ALLOPURINOL. [Suspect]
     Active Substance: ALLOPURINOL
     Indication: TACHYCARDIA PAROXYSMAL
     Dosage: 200 MILLIGRAM, DAILY
     Route: 065
  16. OPACORDEN [Suspect]
     Active Substance: AMIODARONE HYDROCHLORIDE
     Indication: TACHYCARDIA PAROXYSMAL
     Dosage: ()
     Route: 065
  17. ATORVASTATIN [Concomitant]
     Active Substance: ATORVASTATIN
     Dosage: 20 MG DAILY
     Route: 065
  18. ACETYLSALICYLIC ACID [Concomitant]
     Active Substance: ASPIRIN
     Dosage: 75 MG DAILY
     Route: 065
  19. NEORECORMON [Concomitant]
     Active Substance: ERYTHROPOIETIN
     Indication: TACHYCARDIA PAROXYSMAL
     Dosage: 1000 UNITS PER WEEK
     Route: 058
  20. AMLODIPINE [Suspect]
     Active Substance: AMLODIPINE BESYLATE
     Dosage: 5 MG DAILY
     Route: 065
  21. FUROSEMIDE. [Concomitant]
     Active Substance: FUROSEMIDE
     Indication: PRODUCT USED FOR UNKNOWN INDICATION
     Dosage: 40 MG, ONCE A DAY
     Route: 065

REACTIONS (6)
  - Bradycardia [Recovered/Resolved]
  - Disease progression [Unknown]
  - Chronic kidney disease [Unknown]
  - Supraventricular tachycardia [Recovered/Resolved]
  - Drug interaction [Unknown]
  - Tachycardia [Recovered/Resolved]

NARRATIVE: CASE EVENT DATE: 2005
